FAERS Safety Report 22147680 (Version 3)
Quarter: 2023Q2

REPORT INFORMATION
  Report Type: Report from Study
  Country: CA (occurrence: CA)
  Receive Date: 20230328
  Receipt Date: 20230626
  Transmission Date: 20230722
  Serious: Yes (Other)
  Sender: FDA-Public Use
  Company Number: CA-JNJFOC-20230204653

PATIENT
  Age: 5 Decade
  Sex: Female

DRUGS (1)
  1. REMICADE [Suspect]
     Active Substance: INFLIXIMAB
     Indication: Hidradenitis
     Route: 042
     Dates: start: 20191204

REACTIONS (3)
  - Squamous cell carcinoma [Not Recovered/Not Resolved]
  - Metastasis [Not Recovered/Not Resolved]
  - Purulent discharge [Unknown]

NARRATIVE: CASE EVENT DATE: 20230301
